FAERS Safety Report 9149211 (Version 1)
Quarter: 2013Q1

REPORT INFORMATION
  Report Type: Spontaneous
  Country: US (occurrence: US)
  Receive Date: 20130308
  Receipt Date: 20130308
  Transmission Date: 20140127
  Serious: No
  Sender: FDA-Public Use
  Company Number: US-PFIZER INC-2013079791

PATIENT
  Age: 46 Year
  Sex: Male
  Weight: 97.51 kg

DRUGS (2)
  1. LYRICA [Suspect]
     Indication: SENSORY LOSS
     Dosage: UNK
  2. LYRICA [Suspect]
     Indication: NERVE INJURY

REACTIONS (2)
  - Malaise [Unknown]
  - Off label use [Unknown]
